FAERS Safety Report 21687147 (Version 1)
Quarter: 2022Q4

REPORT INFORMATION
  Report Type: Report from Study
  Country: US (occurrence: US)
  Receive Date: 20221206
  Receipt Date: 20221206
  Transmission Date: 20230113
  Serious: No
  Sender: FDA-Public Use
  Company Number: US-ABBVIE-4175135

PATIENT
  Sex: Male

DRUGS (4)
  1. HUMIRA [Suspect]
     Active Substance: ADALIMUMAB
     Indication: Rheumatoid arthritis
     Route: 058
  2. PFIZER-BIONTECH COVID-19 VACCINE [Concomitant]
     Active Substance: TOZINAMERAN
     Indication: COVID-19 screening
     Dosage: FIRST DOSE: FREQUENCY: ONE TIME ONCE
     Route: 030
     Dates: start: 20210831, end: 20210831
  3. PFIZER-BIONTECH COVID-19 VACCINE [Concomitant]
     Active Substance: TOZINAMERAN
     Indication: COVID-19 screening
     Dosage: SECOND DOSE; FREQUENCY: ONE TIME ONCE
     Route: 030
     Dates: start: 20210921, end: 20210921
  4. PFIZER-BIONTECH COVID-19 VACCINE [Concomitant]
     Active Substance: TOZINAMERAN
     Indication: COVID-19 screening
     Dosage: BOOSTER DOSE; FREQUENCY: ONE TIME ONCE
     Route: 030

REACTIONS (1)
  - Muscle spasms [Not Recovered/Not Resolved]
